FAERS Safety Report 5951651-4 (Version None)
Quarter: 2008Q4

REPORT INFORMATION
  Report Type: 
  Country: None (occurrence: None)
  Receive Date: 20081113
  Receipt Date: 20081030
  Transmission Date: 20090506
  Serious: Yes (Death, Hospitalization)
  Sender: FDA-Public Use
  Company Number: FR-GENENTECH-270969

PATIENT
  Sex: Female

DRUGS (3)
  1. RITUXIMAB [Suspect]
     Indication: MANTLE CELL LYMPHOMA
     Dosage: 720 MG, UNK
     Route: 042
     Dates: start: 20071129, end: 20080625
  2. CYCLOPHOSPHAMIDE [Suspect]
     Indication: MANTLE CELL LYMPHOMA
     Dosage: 1460 MG, UNK
     Route: 042
     Dates: start: 20071129, end: 20080418
  3. FLUDARABINE PHOSPHATE [Suspect]
     Indication: MANTLE CELL LYMPHOMA
     Dosage: 173 MG, UNK
     Route: 042
     Dates: start: 20071129, end: 20080418

REACTIONS (2)
  - CRYPTOSPORIDIOSIS INFECTION [None]
  - ENTEROCOLITIS HAEMORRHAGIC [None]
